FAERS Safety Report 5801972-0 (Version None)
Quarter: 2008Q3

REPORT INFORMATION
  Report Type: 
  Country: None (occurrence: None)
  Receive Date: 20080702
  Receipt Date: 20080623
  Transmission Date: 20090109
  Serious: Yes (Death, Life-Threatening, Hospitalization, Other)
  Sender: FDA-Public Use
  Company Number: 2007-02203

PATIENT
  Age: 41 Year
  Sex: Female
  Weight: 63 kg

DRUGS (6)
  1. VELCADE [Suspect]
     Indication: MULTIPLE MYELOMA
     Dosage: 2.10 MG, INTRAVENOUS; INTRAVENOUS
     Route: 042
     Dates: start: 20070619, end: 20080115
  2. VELCADE [Suspect]
     Indication: MULTIPLE MYELOMA
     Dosage: 2.10 MG, INTRAVENOUS; INTRAVENOUS
     Route: 042
     Dates: start: 20080603, end: 20080606
  3. DEXAMETHASONE TAB [Suspect]
     Indication: MULTIPLE MYELOMA
     Dosage: 16.00 MG, INTRAVENOUS; 24.00 MG, INTRAVENOUS
     Route: 042
     Dates: start: 20071106, end: 20071106
  4. DEXAMETHASONE TAB [Suspect]
     Indication: MULTIPLE MYELOMA
     Dosage: 16.00 MG, INTRAVENOUS; 24.00 MG, INTRAVENOUS
     Route: 042
     Dates: start: 20071119, end: 20071217
  5. ALLOPURINOL [Concomitant]
  6. CLARITHROMYCIN [Concomitant]

REACTIONS (12)
  - ABDOMINAL PAIN UPPER [None]
  - ANAEMIA [None]
  - CARDIAC FAILURE [None]
  - CEREBRAL HAEMORRHAGE [None]
  - DIALYSIS [None]
  - DISEASE PROGRESSION [None]
  - GASTROINTESTINAL DISORDER [None]
  - HERPES ZOSTER [None]
  - HYPERCALCAEMIA [None]
  - PLATELET COUNT DECREASED [None]
  - RENAL FAILURE ACUTE [None]
  - VENTRICULAR ARRHYTHMIA [None]
